FAERS Safety Report 10728777 (Version 1)
Quarter: 2015Q1

REPORT INFORMATION
  Report Type: Spontaneous
  Country: US (occurrence: US)
  Receive Date: 20150122
  Receipt Date: 20150122
  Transmission Date: 20150721
  Serious: No
  Sender: FDA-Public Use
  Company Number: US-009507513-1501USA008261

PATIENT
  Age: 19 Year
  Sex: Female
  Weight: 58.96 kg

DRUGS (1)
  1. NEXPLANON [Suspect]
     Active Substance: ETONOGESTREL
     Dosage: UNK, 3 YEAR IMPLANT, IN LEFT ARM
     Route: 059
     Dates: start: 20141229

REACTIONS (1)
  - Hypomenorrhoea [Unknown]

NARRATIVE: CASE EVENT DATE: 20150118
